FAERS Safety Report 5055474-2 (Version None)
Quarter: 2006Q3

REPORT INFORMATION
  Report Type: 
  Country: None (occurrence: None)
  Receive Date: 20060714
  Receipt Date: 20060627
  Transmission Date: 20061208
  Serious: Yes (Hospitalization, Other)
  Sender: FDA-Public Use
  Company Number: US200606000991

PATIENT
  Age: 32 Year
  Sex: Female

DRUGS (13)
  1. HUMATROPE [Suspect]
     Indication: GROWTH HORMONE DEFICIENCY
     Dosage: 0.9 MG, DAILY (1/D)
     Dates: start: 20040101
  2. HUMATROPEN [Concomitant]
  3. OSCAL 500-D (CALCIUM, COLECALCIFEROL) [Concomitant]
  4. CHILDRENS CHEWABLE VITAMINS (VITAMINS NOS) [Concomitant]
  5. ULTRAM [Concomitant]
  6. METHOTREXATE [Concomitant]
  7. FOLIC ACID [Concomitant]
  8. SYNTHROID [Concomitant]
  9. PREDNISONE TAB [Concomitant]
  10. PREMPHASE (PREMARIN;CYCRIN 14/14) [Concomitant]
  11. TEGRETOL [Concomitant]
  12. PLAQUENIL [Concomitant]
  13. VIOXX [Concomitant]

REACTIONS (11)
  - CONVULSION [None]
  - DRY MOUTH [None]
  - EATING DISORDER [None]
  - ENURESIS [None]
  - HEADACHE [None]
  - MALAISE [None]
  - MEDICAL DEVICE COMPLICATION [None]
  - PHARMACEUTICAL PRODUCT COMPLAINT [None]
  - POLLAKIURIA [None]
  - VISUAL FIELD DEFECT [None]
  - WEIGHT DECREASED [None]
